FAERS Safety Report 13589505 (Version 1)
Quarter: 2017Q2

REPORT INFORMATION
  Report Type: Spontaneous
  Country: AU (occurrence: AU)
  Receive Date: 20170530
  Receipt Date: 20170530
  Transmission Date: 20170830
  Serious: Yes (Hospitalization, Disabling)
  Sender: FDA-Public Use
  Company Number: AU-ROCHE-1938948

PATIENT
  Age: 38 Year
  Sex: Female
  Weight: 120 kg

DRUGS (5)
  1. DIANE 35 ED [Concomitant]
  2. PRISTIQ EXTENDED-RELEASE [Concomitant]
     Active Substance: DESVENLAFAXINE SUCCINATE
  3. VALIUM [Suspect]
     Active Substance: DIAZEPAM
     Indication: PRODUCT USED FOR UNKNOWN INDICATION
     Route: 065
     Dates: start: 20160226, end: 20160323
  4. ANTABUSE [Concomitant]
     Active Substance: DISULFIRAM
  5. PROZAC [Concomitant]
     Active Substance: FLUOXETINE HYDROCHLORIDE

REACTIONS (8)
  - Hepatic failure [Unknown]
  - Internal haemorrhage [Unknown]
  - Enterococcal infection [Unknown]
  - Loss of consciousness [Unknown]
  - Impaired healing [Unknown]
  - Encephalopathy [Unknown]
  - Renal failure [Unknown]
  - Wound [Not Recovered/Not Resolved]

NARRATIVE: CASE EVENT DATE: 20160310
